FAERS Safety Report 5231856-0 (Version None)
Quarter: 2007Q1

REPORT INFORMATION
  Report Type: 
  Country: None (occurrence: None)
  Receive Date: 20070206
  Receipt Date: 20070131
  Transmission Date: 20070707
  Serious: Yes (Other)
  Sender: FDA-Public Use
  Company Number: GB-PFIZER INC-2006155910

PATIENT
  Sex: Female

DRUGS (1)
  1. CABERGOLINE [Suspect]
     Dosage: TEXT:1 TABLET

REACTIONS (3)
  - ACCIDENTAL OVERDOSE [None]
  - HYPERPROLACTINAEMIA [None]
  - PROLACTINOMA [None]
